FAERS Safety Report 17190113 (Version 1)
Quarter: 2019Q4

REPORT INFORMATION
  Report Type: Spontaneous
  Country: DE (occurrence: DE)
  Receive Date: 20191223
  Receipt Date: 20191223
  Transmission Date: 20200122
  Serious: Yes (Hospitalization)
  Sender: FDA-Public Use
  Company Number: DE-TEVA-2019-DE-1155603

PATIENT
  Age: 50 Year
  Sex: Male
  Weight: 103 kg

DRUGS (10)
  1. NIVOLUMAB [Suspect]
     Active Substance: NIVOLUMAB
     Dosage: NK MG / KG / KG, ACCORDING TO THE SCHEME, MOST RECENTLY ON 02.07.2018
     Route: 042
  2. TRASTUZUMAB. [Suspect]
     Active Substance: TRASTUZUMAB
     Dosage: NK MG/KG/KG, NACH SCHEMA, ZULETZT AM 02.07.2018, INJEKTIONS-/INFUSIONSL?SUNG
     Route: 042
  3. FLUOROURACIL. [Suspect]
     Active Substance: FLUOROURACIL
     Dosage: NK MG / KG / KG, ACCORDING TO THE SCHEME, MOST RECENTLY ON 02.07.2018,
     Route: 042
  4. LEUCOVORIN. [Suspect]
     Active Substance: LEUCOVORIN
     Dosage: NK MG / KG / KG, ACCORDING TO THE SCHEME, MOST RECENTLY ON 02.07.2018
     Route: 042
  5. PANTOPRAZOL [Concomitant]
     Active Substance: PANTOPRAZOLE SODIUM
     Dosage: 40 MILLIGRAM DAILY;
     Route: 048
  6. OXALIPLATIN. [Suspect]
     Active Substance: OXALIPLATIN
     Dosage: NK MG / KG / KG, ACCORDING TO THE SCHEME, MOST RECENTLY ON 02.07.2018,
     Route: 042
  7. SALVIATHYMOL N [Concomitant]
     Dosage: DROPS
     Route: 048
  8. ONDANSETRON [Concomitant]
     Active Substance: ONDANSETRON
     Dosage: 16 MILLIGRAM DAILY;
     Route: 048
  9. DEXAMETHASON [Concomitant]
     Active Substance: DEXAMETHASONE
     Dosage: 8 MILLIGRAM DAILY; ONLY 1-2 DAYS AFTER CHEMO, TABLETS
     Route: 048
  10. BEPANTHEN 5% [Concomitant]
     Dosage: NK ML, 1-1-1-0, MOUTHWASH
     Route: 048

REACTIONS (4)
  - Rash [Unknown]
  - Pyrexia [Unknown]
  - Hypotension [Unknown]
  - Tachycardia [Unknown]
